FAERS Safety Report 23564369 (Version 1)
Quarter: 2024Q1

REPORT INFORMATION
  Report Type: Spontaneous
  Country: US (occurrence: US)
  Receive Date: 20240226
  Receipt Date: 20240226
  Transmission Date: 20240410
  Serious: Yes (Death, Other)
  Sender: FDA-Public Use
  Company Number: US-SPECGX-T202400634

PATIENT
  Age: 70 Year
  Sex: Female

DRUGS (1)
  1. MORPHINE [Suspect]
     Active Substance: MORPHINE
     Indication: Product used for unknown indication
     Dosage: UNK
     Route: 065

REACTIONS (7)
  - Toxicity to various agents [Fatal]
  - Thrombocytopenia [Unknown]
  - Haemolysis [Unknown]
  - Resuscitation [Unknown]
  - Depressed level of consciousness [Unknown]
  - Coma [Unknown]
  - Bradypnoea [Unknown]
